FAERS Safety Report 13815377 (Version 1)
Quarter: 2017Q3

REPORT INFORMATION
  Report Type: Spontaneous
  Country: US (occurrence: US)
  Receive Date: 20170731
  Receipt Date: 20170731
  Transmission Date: 20171127
  Serious: No
  Sender: FDA-Public Use
  Company Number: US-MEDA-2017070040

PATIENT
  Age: 51 Year
  Sex: Male
  Weight: 86 kg

DRUGS (1)
  1. PROCTOFOAM HC [Suspect]
     Active Substance: HYDROCORTISONE ACETATE\PRAMOXINE HYDROCHLORIDE
     Indication: HAEMORRHOIDS
     Route: 061
     Dates: start: 201706, end: 201706

REACTIONS (2)
  - Drug ineffective [Not Recovered/Not Resolved]
  - Product leakage [Unknown]

NARRATIVE: CASE EVENT DATE: 201706
